FAERS Safety Report 18049128 (Version 1)
Quarter: 2020Q3

REPORT INFORMATION
  Report Type: Spontaneous
  Country: US (occurrence: US)
  Receive Date: 20200721
  Receipt Date: 20200721
  Transmission Date: 20201103
  Serious: Yes (Death)
  Sender: FDA-Public Use
  Company Number: None

PATIENT
  Age: 59 Year
  Sex: Male
  Weight: 99.2 kg

DRUGS (2)
  1. NIVOLUMAB [Suspect]
     Active Substance: NIVOLUMAB
  2. REGORAFENIB. [Suspect]
     Active Substance: REGORAFENIB
     Indication: COLORECTAL CANCER

REACTIONS (1)
  - Death [None]

NARRATIVE: CASE EVENT DATE: 20190812
